FAERS Safety Report 8358807-4 (Version None)
Quarter: 2012Q2

REPORT INFORMATION
  Report Type: 
  Country: None (occurrence: None)
  Receive Date: 20120514
  Receipt Date: 20120423
  Transmission Date: 20120825
  Serious: Yes (Other)
  Sender: FDA-Public Use
  Company Number: PHHY2011KR111593

PATIENT
  Sex: Female
  Weight: 48 kg

DRUGS (3)
  1. HORMONES [Concomitant]
  2. CALCIUM [Concomitant]
  3. EXJADE [Suspect]
     Indication: MYELODYSPLASTIC SYNDROME
     Dosage: 1500 MG, PER DAY
     Route: 048
     Dates: start: 20090401

REACTIONS (3)
  - NASOPHARYNGITIS [None]
  - HERPES ZOSTER [None]
  - ABDOMINAL DISCOMFORT [None]
